FAERS Safety Report 4480460-0 (Version None)
Quarter: 2004Q4

REPORT INFORMATION
  Report Type: 
  Country: None (occurrence: None)
  Receive Date: 20041018
  Receipt Date: 20041005
  Transmission Date: 20050328
  Serious: Yes (Other)
  Sender: FDA-Public Use
  Company Number: S04-USA-06681-01

PATIENT
  Age: 63 Year
  Sex: Female

DRUGS (4)
  1. LEVOTHROID [Suspect]
     Indication: HYPOTHYROIDISM
     Dosage: 88 MCG QD PO
     Route: 048
     Dates: start: 19940101
  2. LEVOTHROID [Suspect]
     Indication: HYPOTHYROIDISM
     Dosage: 100 MCG QD PO
     Route: 048
  3. VITAMIN B COMPLEX CAP [Concomitant]
  4. FOLIC ACID [Concomitant]

REACTIONS (15)
  - ALOPECIA [None]
  - ANAEMIA [None]
  - ASTHENIA [None]
  - BLOOD PRESSURE DIASTOLIC DECREASED [None]
  - BLOOD PRESSURE INCREASED [None]
  - BLOOD THYROID STIMULATING HORMONE INCREASED [None]
  - DIZZINESS [None]
  - FATIGUE [None]
  - HEART RATE INCREASED [None]
  - LOSS OF CONSCIOUSNESS [None]
  - PALPITATIONS [None]
  - PERIPHERAL COLDNESS [None]
  - TEMPERATURE INTOLERANCE [None]
  - VISION BLURRED [None]
  - VISUAL DISTURBANCE [None]
